APPROVED DRUG PRODUCT: ORTHO-NOVUM 7/14-21
Active Ingredient: ETHINYL ESTRADIOL; NORETHINDRONE
Strength: 0.035MG,0.035MG;0.5MG,1MG **Federal Register determination that product was not discontinued or withdrawn for safety or effectiveness reasons**
Dosage Form/Route: TABLET;ORAL-21
Application: N019004 | Product #001
Applicant: ORTHO MCNEIL PHARMACEUTICAL INC
Approved: Apr 4, 1984 | RLD: No | RS: No | Type: DISCN